FAERS Safety Report 15832424 (Version 1)
Quarter: 2018Q4

REPORT INFORMATION
  Report Type: Spontaneous
  Country: US (occurrence: US)
  Receive Date: 20181219
  Receipt Date: 20181219
  Transmission Date: 20190205
  Serious: No
  Sender: FDA-Public Use
  Company Number: None

PATIENT
  Age: 67 Year
  Sex: Male
  Weight: 90.72 kg

DRUGS (4)
  1. TAFINLAR [Suspect]
     Active Substance: DABRAFENIB MESYLATE
     Indication: EMBOLISM VENOUS
  2. TAFINLAR [Suspect]
     Active Substance: DABRAFENIB MESYLATE
     Indication: METASTASIS
  3. TAFINLAR [Suspect]
     Active Substance: DABRAFENIB MESYLATE
     Indication: MALIGNANT MELANOMA
     Route: 048
     Dates: start: 201806
  4. TAFINLAR [Suspect]
     Active Substance: DABRAFENIB MESYLATE
     Indication: PROSTATE CANCER

REACTIONS (5)
  - Eye ulcer [None]
  - Bone pain [None]
  - Arthralgia [None]
  - Myalgia [None]
  - Tenderness [None]
